FAERS Safety Report 25186861 (Version 1)
Quarter: 2025Q2

REPORT INFORMATION
  Report Type: Spontaneous
  Country: PL (occurrence: PL)
  Receive Date: 20250411
  Receipt Date: 20250411
  Transmission Date: 20250716
  Serious: Yes (Hospitalization, Other)
  Sender: NOVITIUM PHARMA
  Company Number: PL-NOVITIUMPHARMA-2025PLNVP00876

PATIENT
  Age: 47 Year
  Sex: Female

DRUGS (4)
  1. PREDNISONE [Suspect]
     Active Substance: PREDNISONE
     Indication: Immunosuppressant drug therapy
  2. DEXAMETHASONE [Suspect]
     Active Substance: DEXAMETHASONE
     Indication: Immunosuppressant drug therapy
  3. MYCOPHENOLATE MOFETIL [Concomitant]
     Active Substance: MYCOPHENOLATE MOFETIL
     Indication: Immunosuppressant drug therapy
  4. TOBRAMYCIN [Concomitant]
     Active Substance: TOBRAMYCIN
     Indication: Evidence based treatment

REACTIONS (2)
  - Mucormycosis [Recovered/Resolved]
  - Streptococcal infection [Unknown]
